FAERS Safety Report 14988691 (Version 2)
Quarter: 2018Q2

REPORT INFORMATION
  Report Type: Spontaneous
  Country: US (occurrence: US)
  Receive Date: 20180608
  Receipt Date: 20180615
  Transmission Date: 20180711
  Serious: Yes (Hospitalization)
  Sender: FDA-Public Use
  Company Number: US-UNITED THERAPEUTICS-UNT-2018-008042

PATIENT
  Age: 57 Year
  Sex: Male

DRUGS (4)
  1. REMODULIN [Suspect]
     Active Substance: TREPROSTINIL
     Indication: PULMONARY ARTERIAL HYPERTENSION
     Dosage: 0.07 ?G/KG, CONTINUING
     Route: 058
     Dates: start: 20171017
  2. ADEMPAS [Suspect]
     Active Substance: RIOCIGUAT
     Indication: PULMONARY HYPERTENSION
     Dosage: 2.5 MG, TID
     Route: 065
     Dates: start: 20180415
  3. AMBRISENTAN [Concomitant]
     Active Substance: AMBRISENTAN
     Indication: PULMONARY HYPERTENSION
     Dosage: 10 MG, QD
     Route: 065
     Dates: start: 20180112
  4. REMODULIN [Suspect]
     Active Substance: TREPROSTINIL
     Dosage: 0.0669 ?G/KG, CONTINUING AT PUMP RATE OF 0.022ML/HR USING 2 ML AT 10MG/ML EVERY 72 HOURS
     Route: 058

REACTIONS (3)
  - Pain in extremity [Recovered/Resolved]
  - Headache [Recovered/Resolved]
  - Diarrhoea [Recovered/Resolved]

NARRATIVE: CASE EVENT DATE: 20180521
